FAERS Safety Report 6463161-9 (Version None)
Quarter: 2009Q4

REPORT INFORMATION
  Report Type: 
  Country: None (occurrence: None)
  Receive Date: 20091123
  Receipt Date: 20091113
  Transmission Date: 20100525
  Serious: Yes (Hospitalization)
  Sender: FDA-Public Use
  Company Number: TPA2009A03293

PATIENT
  Age: 63 Year
  Sex: Female
  Weight: 63.5036 kg

DRUGS (1)
  1. ULORIC [Suspect]
     Indication: GOUT
     Dosage: 80 MG, 1 IN 1 D, PER ORAL; 80 MG, 1 IN 1 D, PER ORAL
     Route: 048
     Dates: start: 20090318

REACTIONS (3)
  - CELLULITIS [None]
  - OEDEMA PERIPHERAL [None]
  - SKIN ULCER [None]
